FAERS Safety Report 5052682-1 (Version None)
Quarter: 2006Q3

REPORT INFORMATION
  Report Type: 
  Country: None (occurrence: None)
  Receive Date: 20060717
  Receipt Date: 20060705
  Transmission Date: 20061208
  Serious: Yes (Hospitalization, Other)
  Sender: FDA-Public Use
  Company Number: PHEH2006US08591

PATIENT
  Age: 66 Year
  Sex: Female
  Weight: 81.632 kg

DRUGS (17)
  1. ZELNORM [Suspect]
     Indication: CONSTIPATION
     Dosage: 6 MG, UNK
     Route: 048
     Dates: end: 20051210
  2. METFORMIN [Concomitant]
     Dates: start: 20051208
  3. GLIPIZIDE [Concomitant]
  4. AVANDIA [Concomitant]
  5. LISINOPRIL [Concomitant]
  6. PREVACID [Concomitant]
  7. LIPITOR [Concomitant]
  8. ELAVIL [Concomitant]
  9. ESTRACE [Concomitant]
  10. TIAZAC [Concomitant]
  11. ASPIRIN [Concomitant]
  12. HYDROCHLOROTHIAZIDE [Concomitant]
  13. TYLENOL (CAPLET) [Concomitant]
  14. ALBUTEROL SPIROS [Concomitant]
  15. ADVAIR DISKUS 100/50 [Concomitant]
  16. GLUCOTROL XL [Concomitant]
  17. VICODIN [Concomitant]

REACTIONS (10)
  - ABDOMINAL PAIN [None]
  - CHILLS [None]
  - CONSTIPATION [None]
  - DEHYDRATION [None]
  - DIARRHOEA [None]
  - DISEASE RECURRENCE [None]
  - HAEMATOCHEZIA [None]
  - MUCOUS STOOLS [None]
  - NORMOCHROMIC NORMOCYTIC ANAEMIA [None]
  - RECTAL HAEMORRHAGE [None]
